FAERS Safety Report 24783618 (Version 1)
Quarter: 2024Q4

REPORT INFORMATION
  Report Type: Spontaneous
  Country: US (occurrence: None)
  Receive Date: 20241227
  Receipt Date: 20241227
  Transmission Date: 20250115
  Serious: Yes (Death)
  Sender: Public
  Company Number: None

PATIENT
  Age: 95 Year
  Sex: Male
  Weight: 73 kg

DRUGS (1)
  1. TROSPIUM CHLORIDE [Suspect]
     Active Substance: TROSPIUM CHLORIDE
     Indication: Hypertonic bladder

REACTIONS (9)
  - Decreased appetite [None]
  - Constipation [None]
  - Vomiting [None]
  - Dysgeusia [None]
  - Throat irritation [None]
  - Nausea [None]
  - Dysgeusia [None]
  - Gastrointestinal disorder [None]
  - Appetite disorder [None]

NARRATIVE: CASE EVENT DATE: 20240708
